FAERS Safety Report 9217382 (Version 1)
Quarter: 2013Q2

REPORT INFORMATION
  Report Type: Spontaneous
  Country: CH (occurrence: CH)
  Receive Date: 20130408
  Receipt Date: 20130408
  Transmission Date: 20140414
  Serious: Yes (Other)
  Sender: FDA-Public Use
  Company Number: CH-ROCHE-1209416

PATIENT
  Age: 61 Year
  Sex: Female

DRUGS (7)
  1. PEG-INTERFERON ALFA 2A [Suspect]
     Indication: CHRONIC HEPATITIS C
     Dosage: RELAPSED IN 2009
     Route: 065
  2. PEG-INTERFERON ALFA 2A [Suspect]
     Route: 065
     Dates: start: 201201
  3. PEG-INTERFERON ALFA 2A [Suspect]
     Dosage: DOSE REDUCED
     Route: 065
  4. RIBAVIRIN [Suspect]
     Indication: CHRONIC HEPATITIS C
     Dosage: RELAPSED IN 2009
     Route: 065
  5. RIBAVIRIN [Suspect]
     Route: 065
     Dates: start: 201201
  6. RIBAVIRIN [Suspect]
     Dosage: DOSE REDUCED
     Route: 065
  7. TELAPREVIR [Suspect]
     Indication: CHRONIC HEPATITIS C
     Route: 065
     Dates: start: 201201

REACTIONS (3)
  - Panniculitis [Recovered/Resolved]
  - Haemolytic anaemia [Unknown]
  - Fatigue [Unknown]
